FAERS Safety Report 6403137-0 (Version None)
Quarter: 2009Q4

REPORT INFORMATION
  Report Type: 
  Country: None (occurrence: None)
  Receive Date: 20091016
  Receipt Date: 20091007
  Transmission Date: 20100525
  Serious: Yes (Disabling)
  Sender: FDA-Public Use
  Company Number: AU-ASTRAZENECA-2009SE18474

PATIENT
  Sex: Female

DRUGS (3)
  1. ARIMIDEX [Suspect]
     Route: 048
     Dates: start: 20080101
  2. UNSPECIFIED ANTI-ARTHRITIS [Concomitant]
  3. GLUCOSAMINE [Concomitant]

REACTIONS (1)
  - OSTEONECROSIS [None]
